FAERS Safety Report 13813233 (Version 4)
Quarter: 2017Q4

REPORT INFORMATION
  Report Type: Report from Study
  Country: IE (occurrence: IE)
  Receive Date: 20170729
  Receipt Date: 20171117
  Transmission Date: 20180320
  Serious: Yes (Other)
  Sender: FDA-Public Use
  Company Number: IE-AMGEN-IRLSL2017105117

PATIENT
  Age: 79 Year
  Sex: Male

DRUGS (17)
  1. ARANESP [Suspect]
     Active Substance: DARBEPOETIN ALFA
     Dosage: 40 MCG, Q2WK
     Route: 058
     Dates: start: 20170721
  2. VENEX [Concomitant]
     Dosage: 75 MG, QD
     Route: 050
  3. NOCTAMID [Concomitant]
     Active Substance: LORMETAZEPAM
     Dosage: 1 MG, QD
     Route: 050
  4. LIPITOR [Concomitant]
     Active Substance: ATORVASTATIN CALCIUM
     Dosage: 40 MG, QD
     Route: 050
  5. NEBILET [Concomitant]
     Active Substance: NEBIVOLOL
     Dosage: 2.5 MG, QD
     Route: 050
  6. PANTOPRAZOLE [Concomitant]
     Active Substance: PANTOPRAZOLE
     Dosage: 40 MG, QD
     Route: 050
  7. ARANESP [Suspect]
     Active Substance: DARBEPOETIN ALFA
     Indication: TRANSPLANT FAILURE
     Dosage: 40 MCG, Q2WK
     Route: 058
     Dates: start: 20170406, end: 2017
  8. UROREC [Concomitant]
     Active Substance: SILODOSIN
     Dosage: 4 MG, QD
     Route: 050
  9. PLAVIX [Concomitant]
     Active Substance: CLOPIDOGREL BISULFATE
     Dosage: 75 MG, QD
     Route: 050
  10. GTN [Concomitant]
     Active Substance: NITROGLYCERIN
     Dosage: 10 MG, QD
     Route: 050
  11. ARANESP [Suspect]
     Active Substance: DARBEPOETIN ALFA
     Dosage: 40 MCG, Q3WK
     Route: 058
     Dates: start: 2017, end: 2017
  12. NU-SEALS ASPIRIN [Concomitant]
     Dosage: 75 MG, QD
     Route: 050
  13. SODIUM BICARBONATE. [Concomitant]
     Active Substance: SODIUM BICARBONATE
     Dosage: 600 MG, BID
     Route: 050
  14. DELTACORTRIL [Concomitant]
     Active Substance: PREDNISOLONE
     Dosage: 5 MG, QD
     Route: 050
  15. CELLCEPT [Concomitant]
     Active Substance: MYCOPHENOLATE MOFETIL\MYCOPHENOLATE MOFETIL HYDROCHLORIDE
     Dosage: 250 MG, BID
     Route: 050
  16. ISOPTIN [Concomitant]
     Active Substance: VERAPAMIL HYDROCHLORIDE
     Dosage: 240 MG, QD
     Route: 050
  17. COVERSYL [Concomitant]
     Active Substance: PERINDOPRIL
     Dosage: 10 MG, QD
     Route: 050

REACTIONS (6)
  - Flushing [Not Recovered/Not Resolved]
  - Off label use [Unknown]
  - Tooth abscess [Recovering/Resolving]
  - Abdominal discomfort [Recovered/Resolved]
  - Diarrhoea [Not Recovered/Not Resolved]
  - Nausea [Not Recovered/Not Resolved]

NARRATIVE: CASE EVENT DATE: 201707
